FAERS Safety Report 24295317 (Version 1)
Quarter: 2024Q3

REPORT INFORMATION
  Report Type: Spontaneous
  Country: US (occurrence: US)
  Receive Date: 20240907
  Receipt Date: 20240907
  Transmission Date: 20241016
  Serious: No
  Sender: B BRAUN
  Company Number: US-B.Braun Medical Inc.-2161342

PATIENT

DRUGS (1)
  1. HEPARIN SODIUM IN DEXTROSE [Suspect]
     Active Substance: HEPARIN SODIUM

REACTIONS (2)
  - Activated partial thromboplastin time shortened [Unknown]
  - Drug ineffective [Unknown]
